FAERS Safety Report 6123554-6 (Version None)
Quarter: 2009Q1

REPORT INFORMATION
  Report Type: 
  Country: None (occurrence: None)
  Receive Date: 20090319
  Receipt Date: 20090306
  Transmission Date: 20090719
  Serious: Yes (Other)
  Sender: FDA-Public Use
  Company Number: DE-RANBAXY-2009RR-22490

PATIENT
  Age: 76 Year
  Sex: Male
  Weight: 103 kg

DRUGS (6)
  1. AMOXICILLIN AND CLAVULANATE POTASSIUM [Suspect]
     Indication: BRONCHITIS
     Dosage: 1 DF, BID
     Dates: start: 20090112, end: 20090113
  2. ALLOPURINOL 100 [Concomitant]
     Dosage: 1 DF, QD
  3. LISINOPRIL [Concomitant]
  4. PAROXETIN 20 [Concomitant]
     Dosage: 1 DF, QD
  5. PLAVIX [Concomitant]
     Dosage: 1 DF, QD
  6. SIMVAHEXAL 20 MG [Concomitant]

REACTIONS (2)
  - HALLUCINATION [None]
  - SLEEP DISORDER [None]
